FAERS Safety Report 18606638 (Version 1)
Quarter: 2020Q4

REPORT INFORMATION
  Report Type: Report from Study
  Country: FR (occurrence: FR)
  Receive Date: 20201211
  Receipt Date: 20201211
  Transmission Date: 20210114
  Serious: Yes (Other)
  Sender: FDA-Public Use
  Company Number: FR-MYLANLABS-2020M1101766

PATIENT

DRUGS (7)
  1. FUSIDIC ACID [Concomitant]
     Active Substance: FUSIDIC ACID
     Indication: OSTEOMYELITIS
     Route: 065
  2. CLINDAMYCIN. [Suspect]
     Active Substance: CLINDAMYCIN
     Indication: STAPHYLOCOCCAL OSTEOMYELITIS
  3. CLINDAMYCIN. [Suspect]
     Active Substance: CLINDAMYCIN
     Indication: STAPHYLOCOCCAL INFECTION
     Dosage: 600 MILLIGRAM
     Route: 048
  4. CLINDAMYCIN. [Suspect]
     Active Substance: CLINDAMYCIN
     Indication: ARTHRITIS INFECTIVE
  5. FUSIDIC ACID [Concomitant]
     Active Substance: FUSIDIC ACID
     Indication: ARTHRITIS INFECTIVE
  6. CLINDAMYCIN. [Suspect]
     Active Substance: CLINDAMYCIN
     Indication: OSTEOMYELITIS
  7. FUSIDIC ACID [Concomitant]
     Active Substance: FUSIDIC ACID
     Indication: STAPHYLOCOCCAL OSTEOMYELITIS

REACTIONS (1)
  - Drug resistance [Unknown]
